FAERS Safety Report 23241929 (Version 1)
Quarter: 2023Q4

REPORT INFORMATION
  Report Type: Spontaneous
  Country: CN (occurrence: None)
  Receive Date: 20231129
  Receipt Date: 20231129
  Transmission Date: 20240109
  Serious: Yes (Hospitalization, Other)
  Sender: FDA-Public Use
  Company Number: 2023A268267

PATIENT
  Age: 5623 Day
  Sex: Male
  Weight: 62.5 kg

DRUGS (3)
  1. SYMBICORT [Suspect]
     Active Substance: BUDESONIDE\FORMOTEROL FUMARATE DIHYDRATE
     Indication: Asthma
     Dosage: 1 INHALATION/TIME , TWO TIMES A DAY
     Route: 055
     Dates: start: 20230830, end: 20231031
  2. LORATADINE [Concomitant]
     Active Substance: LORATADINE
  3. ALBUTEROL [Concomitant]
     Active Substance: ALBUTEROL

REACTIONS (3)
  - Tremor [Recovering/Resolving]
  - Myalgia [Recovering/Resolving]
  - Tachypnoea [Recovering/Resolving]

NARRATIVE: CASE EVENT DATE: 20231030
